FAERS Safety Report 15001219 (Version 1)
Quarter: 2018Q2

REPORT INFORMATION
  Report Type: Spontaneous
  Country: US (occurrence: US)
  Receive Date: 20180523
  Receipt Date: 20180523
  Transmission Date: 20180711
  Serious: Yes (Other)
  Sender: FDA-Public Use
  Company Number: None

PATIENT
  Age: 73 Year
  Sex: Female
  Weight: 80.1 kg

DRUGS (11)
  1. ESTROPIPATE. [Concomitant]
     Active Substance: ESTROPIPATE
  2. LATANOPROST. [Concomitant]
     Active Substance: LATANOPROST
  3. KRILL OIL [Concomitant]
     Active Substance: DIETARY SUPPLEMENT
  4. ALLERGY MED [Concomitant]
  5. TRANDOLOPRIL [Concomitant]
  6. VERAPAMIL ER TAB 240 MG [Suspect]
     Active Substance: VERAPAMIL HYDROCHLORIDE
     Indication: HYPERTENSION
     Dosage: ?          QUANTITY:1 CAPSULE(S);?
     Route: 048
  7. VITAMIN SUPP [Concomitant]
  8. SILICA PLUS [Concomitant]
  9. VITAMIN D3 [Concomitant]
     Active Substance: CHOLECALCIFEROL
  10. 83 MG ASPIRIN [Concomitant]
  11. MOVE FREE ULTRA [Concomitant]

REACTIONS (2)
  - Product substitution issue [None]
  - Blood pressure increased [None]

NARRATIVE: CASE EVENT DATE: 20171204
